FAERS Safety Report 5132680-X (Version None)
Quarter: 2006Q4

REPORT INFORMATION
  Report Type: 
  Country: None (occurrence: None)
  Receive Date: 20061019
  Receipt Date: 20061019
  Transmission Date: 20070319
  Serious: Yes (Hospitalization)
  Sender: FDA-Public Use
  Company Number: None

PATIENT
  Age: 55 Year
  Sex: Female
  Weight: 63.5 kg

DRUGS (5)
  1. CIPROFLOXACIN HCL [Suspect]
  2. VENLAFAXINE HCL [Concomitant]
  3. AZITHROMYCIN [Concomitant]
  4. OXYCODONE 5MG/ACETAMINOPHEN 325 MG [Concomitant]
  5. ALBUTEROL [Concomitant]

REACTIONS (1)
  - PRURITUS [None]
